FAERS Safety Report 7010495 (Version 5)
Quarter: 2013Q4

REPORT INFORMATION
  Report Type: Spontaneous
  Country: US (occurrence: US)
  Receive Date: 20090604
  Receipt Date: 20131224
  Transmission Date: 20140711
  Serious: Yes (Hospitalization, Other)
  Sender: FDA-Public Use
  Company Number: US-ASTRAZENECA-2009UW13521

PATIENT
  Age: 76 Year
  Sex: Male
  Weight: 89.8 kg

DRUGS (28)
  1. SYMBICORT [Suspect]
     Indication: ASTHMA
     Dosage: 640 MCG, TWO TIMES A DAY
     Route: 055
  2. SYMBICORT [Suspect]
     Indication: CHRONIC OBSTRUCTIVE PULMONARY DISEASE
     Dosage: 640 MCG, TWO TIMES A DAY
     Route: 055
  3. SYMBICORT [Suspect]
     Indication: ASTHMA
     Dosage: 160/4.5, TWO PUFFS TWO TIMES A DAY
     Route: 055
     Dates: start: 2010
  4. SYMBICORT [Suspect]
     Indication: CHRONIC OBSTRUCTIVE PULMONARY DISEASE
     Dosage: 160/4.5, TWO PUFFS TWO TIMES A DAY
     Route: 055
     Dates: start: 2010
  5. SYMBICORT [Suspect]
     Indication: ASTHMA
     Dosage: 160/4.5, TWO PUFFS, TWO TIMES A DAY
     Route: 055
     Dates: start: 2010
  6. SYMBICORT [Suspect]
     Indication: CHRONIC OBSTRUCTIVE PULMONARY DISEASE
     Dosage: 160/4.5, TWO PUFFS, TWO TIMES A DAY
     Route: 055
     Dates: start: 2010
  7. ATENOLOL [Suspect]
     Route: 048
  8. NEXIUM [Suspect]
     Indication: GASTROOESOPHAGEAL REFLUX DISEASE
     Route: 048
  9. CRESTOR [Suspect]
     Indication: BLOOD CHOLESTEROL ABNORMAL
     Route: 048
  10. OXYCODONE [Suspect]
     Route: 065
  11. ATROVENT [Concomitant]
     Indication: ASTHMA
     Route: 055
  12. ATROVENT [Concomitant]
     Indication: CHRONIC OBSTRUCTIVE PULMONARY DISEASE
     Route: 055
  13. TWENTY SIX DIFFERENT MEDICATION [Concomitant]
  14. ASTHMA MEDICATION [Concomitant]
  15. METFORMIN [Concomitant]
     Indication: BLOOD GLUCOSE ABNORMAL
  16. ACTOS [Concomitant]
     Indication: DIABETES MELLITUS
  17. GLYBURIDE [Concomitant]
  18. CLORAZAPET [Concomitant]
     Indication: DEPRESSION
  19. PRIDONE [Concomitant]
  20. TOVIAZ [Concomitant]
     Indication: URINE ANALYSIS ABNORMAL
  21. AVODART [Concomitant]
  22. ALLOPURINA [Concomitant]
  23. METHADONE [Concomitant]
     Indication: PAIN
  24. METHADONE [Concomitant]
     Indication: DRUG DEPENDENCE
  25. PAXIL [Concomitant]
  26. XANAX [Concomitant]
     Indication: DEPRESSION
  27. XANAX [Concomitant]
     Indication: NERVOUS SYSTEM DISORDER
  28. VITAMIN D [Concomitant]

REACTIONS (12)
  - Device misuse [Unknown]
  - Drug dose omission [Not Recovered/Not Resolved]
  - Rib fracture [Unknown]
  - Renal failure [Unknown]
  - Drug dependence [Unknown]
  - Oesophageal injury [Unknown]
  - Blood cholesterol abnormal [Unknown]
  - Fall [Unknown]
  - Increased upper airway secretion [Unknown]
  - Gastrooesophageal reflux disease [Unknown]
  - Swelling face [Unknown]
  - Intentional drug misuse [Unknown]
